FAERS Safety Report 4738293-3 (Version None)
Quarter: 2005Q3

REPORT INFORMATION
  Report Type: 
  Country: None (occurrence: None)
  Receive Date: 20050803
  Receipt Date: 20050728
  Transmission Date: 20060218
  Serious: Yes (Life-Threatening)
  Sender: FDA-Public Use
  Company Number: TCI2005A03302

PATIENT
  Age: 56 Year
  Sex: Female

DRUGS (7)
  1. LANSOPRAZOLE [Suspect]
     Indication: GASTRIC ULCER HAEMORRHAGE
     Dosage: 30 MG (15 MG, 2 IN 1 D) PER ORAL; 30 MG (30 MG, 1 IN 1 D) PER ORAL
     Route: 048
     Dates: start: 20050525, end: 20050531
  2. LANSOPRAZOLE [Suspect]
     Indication: GASTRIC ULCER HAEMORRHAGE
     Dosage: 30 MG (15 MG, 2 IN 1 D) PER ORAL; 30 MG (30 MG, 1 IN 1 D) PER ORAL
     Route: 048
     Dates: start: 20050601, end: 20050609
  3. FLOMOX (CEFCAPENE PIVOXIL HYDROCHLORIDE (TABLETS) [Suspect]
     Indication: INFLAMMATION
     Dosage: 3 TAB. (1 TAB., 3 IN 1 D) PER ORAL
     Route: 048
     Dates: start: 20050605, end: 20050609
  4. MUCOSTA (REBAMIPIDE) (TABLETS) [Concomitant]
  5. PURSENNID (TABLETS) [Concomitant]
  6. NELBON (NITRAZEPAM) (TABLETS) [Concomitant]
  7. NIFLEC (NIFLEC) (PREPARATION FOR ORAL USE (NOS) ) [Concomitant]

REACTIONS (11)
  - ANOREXIA [None]
  - BLOOD FIBRINOGEN INCREASED [None]
  - CATHETER RELATED INFECTION [None]
  - DISSEMINATED INTRAVASCULAR COAGULATION [None]
  - ENTEROBACTER INFECTION [None]
  - INJECTION SITE INFLAMMATION [None]
  - MALNUTRITION [None]
  - PLATELET COUNT DECREASED [None]
  - SEPSIS [None]
  - VOMITING [None]
  - WEIGHT DECREASED [None]
